FAERS Safety Report 16575728 (Version 1)
Quarter: 2019Q3

REPORT INFORMATION
  Report Type: Spontaneous
  Country: DE (occurrence: DE)
  Receive Date: 20190716
  Receipt Date: 20190716
  Transmission Date: 20191004
  Serious: Yes (Hospitalization)
  Sender: FDA-Public Use
  Company Number: DE-SA-2019SA184873

PATIENT
  Age: 40 Year
  Sex: Female
  Weight: 56 kg

DRUGS (14)
  1. SANCUSO [Concomitant]
     Active Substance: GRANISETRON
     Dosage: 3.1 MG, OVER 24 H, TRANSDERMAL PATCH
     Route: 062
  2. NEUPOGEN [Concomitant]
     Active Substance: FILGRASTIM
     Dosage: 48 MILLION I.U., AFTER LABORATORY, INJECTION / INFUSION SOLUTION(LITERAL TRANSLATION
     Route: 042
  3. FLUOROURACIL. [Suspect]
     Active Substance: FLUOROURACIL
     Dosage: 2800 MG / M2,LAST ON 10.11.2017,  INJECTION / INFUSION SOLUTION
     Route: 042
  4. LOPERAMID [Concomitant]
     Active Substance: LOPERAMIDE
     Dosage: 2 MG, IF NECESSARY, TABLETS
     Route: 048
  5. AFLIBERCEPT [Suspect]
     Active Substance: AFLIBERCEPT
     Dosage: 4 MG / KG BW, AFTER SCHEZULETZT AM10.11.2017 MA, INJECTION/INFUSION SOLUTION (SCHEZULETZT THIS MAY B
     Route: 042
  6. ESCITALOPRAM [Concomitant]
     Active Substance: ESCITALOPRAM OXALATE
     Dosage: 20 MG, 1-0-0-0, TABLET
     Route: 048
  7. ONDANSETRON [Concomitant]
     Active Substance: ONDANSETRON
     Dosage: 8 MG, ACCORDING TO SCHEME, TABLETS
     Route: 048
  8. OXALIPLATIN. [Suspect]
     Active Substance: OXALIPLATIN
     Dosage: 50 MG/M2, LAST ON 10.11.2017,  INJECTION / INFUSION SOLUTION
     Route: 042
  9. MISTEL [VISCUM ALBUM] [Concomitant]
     Dosage: 0.2 MG, TID
     Route: 048
  10. CALCIUM LEVOFOLINATE [Suspect]
     Active Substance: LEVOLEUCOVORIN CALCIUM
     Dosage: 200 MG / M2, LAST ON 10.11.2017,INJECTION / INFUSION SOLUTION
     Route: 042
  11. HALOPERIDOL. [Concomitant]
     Active Substance: HALOPERIDOL
     Dosage: 3 GTT, IF NECESSARY, DROPS
     Route: 048
  12. DEXAMETHASON [DEXAMETHASONE] [Concomitant]
     Active Substance: DEXAMETHASONE
     Dosage: 8 MG, ACCORDING TO THE SCHEME, TABLETS
     Route: 048
  13. VITIS COMP [Concomitant]
     Dosage: 20|40|20|40 MG, 1-1-1-0,TABLET
     Route: 048
  14. CHRISTROSE [Concomitant]
     Dosage: NK NK, NK, AMPULLEN
     Route: 048

REACTIONS (6)
  - Pyrexia [Unknown]
  - Headache [Unknown]
  - Abdominal pain lower [Unknown]
  - Abdominal pain upper [Unknown]
  - General physical health deterioration [Unknown]
  - Fatigue [Unknown]
